FAERS Safety Report 19880805 (Version 5)
Quarter: 2022Q2

REPORT INFORMATION
  Report Type: Report from Study
  Country: US (occurrence: US)
  Receive Date: 20210924
  Receipt Date: 20220418
  Transmission Date: 20220720
  Serious: Yes (Hospitalization, Other)
  Sender: FDA-Public Use
  Company Number: US-G1-000342

PATIENT
  Age: 73 Year
  Sex: Male
  Weight: 63.5 kg

DRUGS (13)
  1. TRILACICLIB [Suspect]
     Active Substance: TRILACICLIB
     Indication: Non-small cell lung cancer metastatic
     Dosage: TIME INTERVAL: CYCLICAL; 240 MG/M2 ON DAY 1 OF EACH CYCLE
     Route: 041
     Dates: start: 20210805, end: 20210826
  2. TRILACICLIB [Suspect]
     Active Substance: TRILACICLIB
     Indication: Non-small cell lung cancer metastatic
  3. DOCETAXEL [Suspect]
     Active Substance: DOCETAXEL
     Indication: Non-small cell lung cancer metastatic
     Dosage: TIME INTERVAL: CYCLICAL; 75 MG/M2 ON DAY 1 OF EACH CYCLE
     Route: 041
     Dates: start: 20210805
  4. DOCETAXEL [Suspect]
     Active Substance: DOCETAXEL
     Indication: Non-small cell lung cancer metastatic
     Dosage: TIME INTERVAL: CYCLICAL; 75 MG/M2 ON DAY 1 OF EACH CYCLE
     Route: 041
     Dates: start: 20210826
  5. 2077505 (GLOBALC3Sep21): pantoprazole [Concomitant]
     Indication: Gastrooesophageal reflux disease
     Route: 048
     Dates: start: 20200220
  6. 1262395 (GLOBALC3Sep21): lisinopril [Concomitant]
     Indication: Hypertension
     Route: 048
     Dates: start: 201905
  7. 1262333 (GLOBALC3Sep21): aspirin [Concomitant]
     Indication: Cardiovascular event prophylaxis
     Route: 048
     Dates: start: 201905
  8. 3957128 (GLOBALC3Sep21): Percocet [Concomitant]
     Indication: Cancer pain
     Dosage: 1 TABLET
     Route: 048
     Dates: start: 202101
  9. 1692462 (GLOBALC3Sep21): ondansetron [Concomitant]
     Indication: Nausea
     Dosage: TIME INTERVAL: AS NECESSARY
     Route: 048
     Dates: start: 202103
  10. 1610922 (GLOBALC3Sep21): zolpidem [Concomitant]
     Indication: Insomnia
     Dosage: TIME INTERVAL: AS NECESSARY
     Route: 048
     Dates: start: 202103
  11. 1326814 (GLOBALC3Sep21): lorazepam [Concomitant]
     Indication: Anxiety
     Route: 048
     Dates: start: 202103
  12. 1229812 (GLOBALC3Sep21): Colace [Concomitant]
     Indication: Constipation
     Dosage: 1 DOSE UNIT/FREQUENCY UNKNOWN
     Route: 048
     Dates: start: 202103
  13. 3956882 (GLOBALC3Sep21): oxycodone-acetaminophen 5-325 [Concomitant]
     Indication: Cancer pain
     Dosage: TIME INTERVAL: AS NECESSARY; 5-325 MG,Q6H PRN
     Route: 048
     Dates: start: 20210826

REACTIONS (1)
  - Pneumonia [Recovered/Resolved]

NARRATIVE: CASE EVENT DATE: 20210910
